FAERS Safety Report 18140205 (Version 6)
Quarter: 2022Q4

REPORT INFORMATION
  Report Type: Report from Study
  Country: DE (occurrence: DE)
  Receive Date: 20200812
  Receipt Date: 20221031
  Transmission Date: 20230112
  Serious: Yes (Hospitalization)
  Sender: FDA-Public Use
  Company Number: None

PATIENT
  Age: 55 Year
  Sex: Female
  Weight: 67.8 kg

DRUGS (11)
  1. ISCALIMAB [Suspect]
     Active Substance: ISCALIMAB
     Indication: Liver transplant
     Dosage: 2016 MG, ONCE
     Route: 042
     Dates: start: 20200130, end: 20200611
  2. ISCALIMAB [Suspect]
     Active Substance: ISCALIMAB
     Dosage: 949.5 MG, ONCE
     Route: 058
     Dates: start: 20200206
  3. ISCALIMAB [Suspect]
     Active Substance: ISCALIMAB
     Dosage: 600 MG, Q2W
     Route: 058
     Dates: start: 20200220
  4. TACROLIMUS [Suspect]
     Active Substance: TACROLIMUS
     Indication: Liver transplant
     Dosage: 6 MG, QD
     Route: 048
     Dates: start: 20200130
  5. PREDNISOLONE [Concomitant]
     Active Substance: PREDNISOLONE
     Indication: Prophylaxis against transplant rejection
     Dosage: UNK
     Route: 065
     Dates: start: 20200514, end: 20200726
  6. CHOLECALCIFEROL [Concomitant]
     Active Substance: CHOLECALCIFEROL
     Indication: Vitamin D deficiency
     Dosage: UNK
     Route: 065
     Dates: start: 20200224
  7. FILGRASTIM [Concomitant]
     Active Substance: FILGRASTIM
     Indication: Leukopenia
     Dosage: UNK
     Route: 065
     Dates: start: 20200617, end: 20200617
  8. FILGRASTIM [Concomitant]
     Active Substance: FILGRASTIM
     Dosage: UNK
     Route: 065
     Dates: start: 20200625, end: 20200625
  9. UNACID [Concomitant]
     Indication: Skin lesion
     Dosage: UNK
     Route: 065
     Dates: start: 20200702, end: 20200706
  10. ENOXAPARIN SODIUM [Concomitant]
     Active Substance: ENOXAPARIN SODIUM
     Indication: Prophylaxis
     Dosage: UNK
     Route: 065
     Dates: start: 20200706, end: 20200709
  11. TACROLIMUS [Concomitant]
     Active Substance: TACROLIMUS
     Indication: Immunosuppressant drug therapy
     Dosage: UNK
     Route: 065
     Dates: start: 20200710, end: 20200713

REACTIONS (1)
  - Subcutaneous abscess [Recovered/Resolved]

NARRATIVE: CASE EVENT DATE: 20200706
